FAERS Safety Report 4866456-5 (Version None)
Quarter: 2005Q4

REPORT INFORMATION
  Report Type: 
  Country: None (occurrence: None)
  Receive Date: 20051221
  Receipt Date: 20051213
  Transmission Date: 20060501
  Serious: Yes (Other)
  Sender: FDA-Public Use
  Company Number: GBWYE735210JUN05

PATIENT
  Age: 31 Year
  Sex: Female

DRUGS (2)
  1. EFFEXOR [Suspect]
     Dosage: SEE IMAGE
     Route: 048
     Dates: start: 20000101
  2. EFFEXOR [Suspect]
     Dosage: SEE IMAGE
     Route: 048
     Dates: start: 20050601

REACTIONS (3)
  - DRUG EXPOSURE BEFORE PREGNANCY [None]
  - DRUG EXPOSURE DURING PREGNANCY [None]
  - PRE-ECLAMPSIA [None]
